FAERS Safety Report 25597479 (Version 1)
Quarter: 2025Q3

REPORT INFORMATION
  Report Type: Spontaneous
  Country: US (occurrence: US)
  Receive Date: 20250723
  Receipt Date: 20250723
  Transmission Date: 20251020
  Serious: No
  Sender: ASTELLAS
  Company Number: US-ASTELLAS-2025-AER-025084

PATIENT
  Age: 61 Year
  Sex: Female

DRUGS (2)
  1. VEOZAH [Suspect]
     Active Substance: FEZOLINETANT
     Indication: Product used for unknown indication
     Route: 050
  2. VEOZAH [Suspect]
     Active Substance: FEZOLINETANT
     Route: 050

REACTIONS (1)
  - Rash [Recovered/Resolved]
